FAERS Safety Report 8803172 (Version 1)
Quarter: 2012Q4

REPORT INFORMATION
  Report Type: 
  Country: US (occurrence: US)
  Receive Date: 20120924
  Receipt Date: 20120924
  Transmission Date: 20130627
  Serious: Yes (Hospitalization)
  Sender: FDA-Public Use
  Company Number: US-NOVOPROD-360072

PATIENT
  Age: 65 Year
  Sex: Female
  Weight: 81.63 kg

DRUGS (3)
  1. LEVEMIR [Suspect]
     Indication: DIABETES MELLITUS
     Dosage: 4 Units, daily
     Route: 058
     Dates: start: 201201, end: 20120908
  2. LEVEMIR [Suspect]
     Dosage: 10 Units, daily
     Route: 058
     Dates: start: 20120909
  3. NOVOLIN R [Concomitant]
     Indication: DIABETES MELLITUS
     Dosage: Sliding scale, qid
     Route: 058

REACTIONS (2)
  - Expired drug administered [Recovered/Resolved]
  - Deep vein thrombosis [Recovered/Resolved]
